FAERS Safety Report 5835911-3 (Version None)
Quarter: 2008Q3

REPORT INFORMATION
  Report Type: 
  Country: None (occurrence: None)
  Receive Date: 20080805
  Receipt Date: 20080722
  Transmission Date: 20090109
  Serious: Yes (Other)
  Sender: FDA-Public Use
  Company Number: B0531423A

PATIENT
  Age: 26 Year
  Sex: Female

DRUGS (2)
  1. LAMOTRIGINE           (GENERIC) (LAMOTRIGINE) [Suspect]
     Indication: BIPOLAR I DISORDER
  2. QUETIAPINE [Concomitant]

REACTIONS (4)
  - DEPRESSION [None]
  - DISEASE RECURRENCE [None]
  - DRUG TOLERANCE [None]
  - SELF-INJURIOUS IDEATION [None]
